FAERS Safety Report 12633854 (Version 2)
Quarter: 2016Q3

REPORT INFORMATION
  Report Type: Spontaneous
  Country: JP (occurrence: JP)
  Receive Date: 20160808
  Receipt Date: 20160811
  Transmission Date: 20161109
  Serious: Yes (Hospitalization)
  Sender: FDA-Public Use
  Company Number: JP-BAYER-2016-146818

PATIENT
  Sex: Male
  Weight: 2.8 kg

DRUGS (1)
  1. BAYASPIRIN [Suspect]
     Active Substance: ASPIRIN
     Dosage: UNK
     Route: 064

REACTIONS (3)
  - Resuscitation [Recovered/Resolved]
  - Apgar score abnormal [Recovering/Resolving]
  - Foetal exposure during pregnancy [Recovered/Resolved]
